FAERS Safety Report 12715366 (Version 1)
Quarter: 2016Q3

REPORT INFORMATION
  Report Type: Spontaneous
  Country: US (occurrence: US)
  Receive Date: 20160906
  Receipt Date: 20160906
  Transmission Date: 20161109
  Serious: No
  Sender: FDA-Public Use
  Company Number: US-ASTRAZENECA-2016SE91649

PATIENT
  Sex: Male

DRUGS (3)
  1. MAXIDE HCTZ [Concomitant]
     Indication: HYPERTENSION
     Dosage: 37.5/25 MG  A DAY
  2. NIFEDICAL XL [Concomitant]
     Active Substance: NIFEDIPINE
     Indication: HYPERTENSION
     Route: 048
  3. SYMBICORT [Suspect]
     Active Substance: BUDESONIDE\FORMOTEROL FUMARATE DIHYDRATE
     Dosage: 160/4.5 RESPIRATOR INHALANT, BY MOUTH, 2 PUFFS TWICE A DAY
     Route: 055
     Dates: start: 20160808

REACTIONS (3)
  - Blood pressure increased [Unknown]
  - Drug dose omission [Unknown]
  - Product quality issue [Unknown]
